FAERS Safety Report 4325823-9 (Version None)
Quarter: 2004Q1

REPORT INFORMATION
  Report Type: 
  Country: None (occurrence: None)
  Receive Date: 20040329
  Receipt Date: 20031016
  Transmission Date: 20041129
  Serious: Yes (Life-Threatening, Hospitalization)
  Sender: FDA-Public Use
  Company Number: PHBS2003JP11469

PATIENT
  Age: 70 Year
  Sex: Male

DRUGS (17)
  1. STARASID [Concomitant]
     Dosage: 300 MG/D
     Dates: start: 20020101
  2. STARASID [Concomitant]
     Dosage: 100 MG/D
     Dates: start: 20030801
  3. PREDONINE [Suspect]
  4. PREDONINE [Suspect]
     Dosage: 30 MG/D
     Dates: start: 20030801
  5. ALTAT [Concomitant]
  6. LASIX [Concomitant]
  7. CALSLOT [Concomitant]
     Route: 048
  8. SLOW-K [Concomitant]
     Route: 048
  9. ZYLORIC ^FAES^ [Concomitant]
     Route: 048
  10. POTASSIUM GLUCONATE [Concomitant]
  11. AMARYL [Concomitant]
     Route: 048
  12. FILDESIN [Concomitant]
     Dosage: 2 MG/D
     Dates: start: 20030101
  13. GLEEVEC [Suspect]
     Indication: CHRONIC MYELOID LEUKAEMIA
     Dosage: 300 MG/D
     Route: 048
     Dates: start: 20020101, end: 20020101
  14. GLEEVEC [Suspect]
     Dosage: 400 MG/D
     Route: 048
     Dates: start: 20020101, end: 20021001
  15. GLEEVEC [Suspect]
     Dosage: 200 MG/D
     Route: 048
     Dates: start: 20030929, end: 20031008
  16. GLEEVEC [Suspect]
     Dosage: 300 MG/D
     Route: 048
     Dates: start: 20031009, end: 20031010
  17. GLEEVEC [Suspect]
     Dosage: 200 MG/D
     Route: 048
     Dates: start: 20020501, end: 20020101

REACTIONS (9)
  - AORTIC DISSECTION [None]
  - BLAST CRISIS IN MYELOGENOUS LEUKAEMIA [None]
  - BONE MARROW DEPRESSION [None]
  - CHEST DISCOMFORT [None]
  - CHEST PAIN [None]
  - DIABETES MELLITUS INADEQUATE CONTROL [None]
  - PALPITATIONS [None]
  - PLATELET COUNT DECREASED [None]
  - PLEURAL EFFUSION [None]
